FAERS Safety Report 5055090-2 (Version None)
Quarter: 2006Q3

REPORT INFORMATION
  Report Type: 
  Country: None (occurrence: None)
  Receive Date: 20060714
  Receipt Date: 20060704
  Transmission Date: 20061208
  Serious: Yes (Other)
  Sender: FDA-Public Use
  Company Number: HQWYE725610APR06

PATIENT
  Age: 72 Year
  Sex: Female

DRUGS (3)
  1. PANTOPRAZOLE SODIUM [Suspect]
     Indication: DUODENAL ULCER
     Dosage: SEE IMAGE
     Route: 048
     Dates: start: 20050628, end: 20050704
  2. PANTOPRAZOLE SODIUM [Suspect]
     Indication: DUODENAL ULCER
     Dosage: SEE IMAGE
     Route: 048
     Dates: start: 20050705, end: 20050719
  3. PANTOPRAZOLE SODIUM [Suspect]
     Indication: DUODENAL ULCER
     Dosage: SEE IMAGE
     Route: 048
     Dates: start: 20050909, end: 20060328

REACTIONS (11)
  - ABDOMINAL PAIN UPPER [None]
  - AORTIC ARTERIOSCLEROSIS [None]
  - BLOOD CHOLESTEROL INCREASED [None]
  - CALCIFICATION OF MUSCLE [None]
  - HAEMATURIA [None]
  - HEPATIC STEATOSIS [None]
  - HEPATOMEGALY [None]
  - LOW DENSITY LIPOPROTEIN INCREASED [None]
  - NAUSEA [None]
  - RENAL CYST [None]
  - UNEVALUABLE EVENT [None]
